FAERS Safety Report 5445699-6 (Version None)
Quarter: 2007Q3

REPORT INFORMATION
  Report Type: 
  Country: None (occurrence: None)
  Receive Date: 20070904
  Receipt Date: 20070824
  Transmission Date: 20080115
  Serious: Yes (Death, Hospitalization)
  Sender: FDA-Public Use
  Company Number: VNL_00690_2007

PATIENT
  Sex: Female
  Weight: 61.2356 kg

DRUGS (7)
  1. APOKYN [Suspect]
     Indication: PARKINSON'S DISEASE
     Dosage: (0.3 ML SUBCUTANEOUS), (0.4 ML PRN SUBCUTANEOUS), (0.4 ML 1X/8 HOURS SUBCUTANEOUS)
     Route: 058
     Dates: start: 20070101, end: 20070719
  2. APOKYN [Suspect]
     Indication: PARKINSON'S DISEASE
     Dosage: (0.3 ML SUBCUTANEOUS), (0.4 ML PRN SUBCUTANEOUS), (0.4 ML 1X/8 HOURS SUBCUTANEOUS)
     Route: 058
     Dates: start: 20070510
  3. APOKYN [Suspect]
     Indication: PARKINSON'S DISEASE
     Dosage: (0.3 ML SUBCUTANEOUS), (0.4 ML PRN SUBCUTANEOUS), (0.4 ML 1X/8 HOURS SUBCUTANEOUS)
     Route: 058
     Dates: start: 20070721
  4. SINEMET [Concomitant]
  5. TIGAN [Concomitant]
  6. COMTAN [Concomitant]
  7. OTHER CONCOMITANT MEDICATIONS [Concomitant]

REACTIONS (5)
  - HYPERTENSION [None]
  - HYPOTENSION [None]
  - PNEUMONIA [None]
  - REFUSAL OF TREATMENT BY PATIENT [None]
  - URINARY TRACT INFECTION [None]
